FAERS Safety Report 14957893 (Version 3)
Quarter: 2018Q2

REPORT INFORMATION
  Report Type: Report from Study
  Country: None (occurrence: BE)
  Receive Date: 20180531
  Receipt Date: 20180612
  Transmission Date: 20180711
  Serious: Yes (Hospitalization)
  Sender: FDA-Public Use
  Company Number: BE-ABBVIE-18K-013-2371688-00

PATIENT
  Sex: Male

DRUGS (3)
  1. DUODOPA [Suspect]
     Active Substance: CARBIDOPA\LEVODOPA
     Indication: PARKINSON^S DISEASE
     Dosage: MD=4.5ML?CD=3.3ML/HR DURING 16 HOURS?ED=2ML
     Route: 050
     Dates: start: 20131216, end: 20140108
  2. DUODOPA [Suspect]
     Active Substance: CARBIDOPA\LEVODOPA
     Dosage: DOSES CONTINUOUSLY MONITORED AND ADAPTED
     Route: 050
     Dates: start: 20140108, end: 20180108
  3. DUODOPA [Suspect]
     Active Substance: CARBIDOPA\LEVODOPA
     Dosage: MD= 6.5ML?CD= 4ML/HOUR DURING 16 HOURS?ED= 2.5ML
     Route: 050
     Dates: start: 20180108

REACTIONS (3)
  - Device dislocation [Recovered/Resolved]
  - Fall [Recovered/Resolved]
  - Gait inability [Unknown]
